FAERS Safety Report 4828411-0 (Version None)
Quarter: 2005Q4

REPORT INFORMATION
  Report Type: 
  Country: None (occurrence: None)
  Receive Date: 20051115
  Receipt Date: 20051031
  Transmission Date: 20060501
  Serious: Yes (Hospitalization)
  Sender: FDA-Public Use
  Company Number: NZ-MERCK-0511NZL00065

PATIENT
  Age: 82 Year
  Sex: Female

DRUGS (4)
  1. FOSAMAX [Suspect]
     Indication: OSTEOPOROSIS
     Route: 048
  2. CALCIUM CARBONATE [Concomitant]
     Indication: ARTHRITIS
     Route: 048
  3. NITRAZEPAM [Concomitant]
     Indication: INSOMNIA
     Route: 048
  4. ACETAMINOPHEN [Concomitant]
     Indication: PAIN
     Route: 065

REACTIONS (2)
  - FLATULENCE [None]
  - OSTEOARTHRITIS [None]
